FAERS Safety Report 4528758-1 (Version None)
Quarter: 2004Q4

REPORT INFORMATION
  Report Type: 
  Country: None (occurrence: None)
  Receive Date: 20041216
  Receipt Date: 20041102
  Transmission Date: 20050328
  Serious: Yes (Other)
  Sender: FDA-Public Use
  Company Number: JP-ROCHE-385963

PATIENT
  Age: 30 Year
  Sex: Male

DRUGS (1)
  1. ROCEPHIN [Suspect]
     Route: 041
     Dates: start: 20040927, end: 20040927

REACTIONS (6)
  - DRUG ERUPTION [None]
  - EXANTHEM [None]
  - PRURITUS [None]
  - SHOCK [None]
  - STRIDOR [None]
  - URTICARIA [None]
